FAERS Safety Report 8169516-9 (Version None)
Quarter: 2012Q1

REPORT INFORMATION
  Report Type: 
  Country: None (occurrence: None)
  Receive Date: 20120228
  Receipt Date: 20120217
  Transmission Date: 20120608
  Serious: Yes (Disabling)
  Sender: FDA-Public Use
  Company Number: US-SANOFI-AVENTIS-2012SA011283

PATIENT
  Age: 50 Year
  Sex: Female

DRUGS (14)
  1. CELEBREX [Concomitant]
  2. LYRICA [Concomitant]
  3. BUDESONIDE/FORMOTEROL [Concomitant]
  4. VITAMIN D [Concomitant]
  5. SUMATRIPTAN [Concomitant]
     Indication: MIGRAINE
  6. WELLBUTRIN [Concomitant]
  7. PERCOCET [Concomitant]
  8. LORAZEPAM [Concomitant]
  9. TOPAMAX [Concomitant]
  10. ABILIFY [Concomitant]
  11. LANTUS [Suspect]
     Indication: TYPE 2 DIABETES MELLITUS
     Dosage: DOSE:45 UNIT(S)
     Route: 058
     Dates: start: 20090901
  12. ALPRENOLOL [Concomitant]
  13. PAROXETINE [Concomitant]
  14. METFORMIN HCL [Concomitant]

REACTIONS (6)
  - ADVERSE REACTION [None]
  - PAIN IN EXTREMITY [None]
  - AMNESIA [None]
  - NEUROPATHY PERIPHERAL [None]
  - DISTURBANCE IN ATTENTION [None]
  - FATIGUE [None]
